FAERS Safety Report 20344542 (Version 3)
Quarter: 2022Q1

REPORT INFORMATION
  Report Type: Spontaneous
  Country: JP (occurrence: JP)
  Receive Date: 20220118
  Receipt Date: 20220222
  Transmission Date: 20220423
  Serious: Yes (Death, Other)
  Sender: FDA-Public Use
  Company Number: JP-TAKEDA-2021TEU007167

PATIENT
  Age: 68 Year
  Sex: Female
  Weight: 63.7 kg

DRUGS (10)
  1. URAPIDIL [Suspect]
     Active Substance: URAPIDIL
     Indication: Hypertonic bladder
     Dosage: 15 MILLIGRAM, Q12H
     Route: 048
     Dates: start: 20170525, end: 20210812
  2. MIDODRINE [Suspect]
     Active Substance: MIDODRINE
     Indication: Product used for unknown indication
     Dosage: 2 MILLIGRAM, Q12H
     Route: 048
     Dates: end: 20210812
  3. MIRABEGRON [Suspect]
     Active Substance: MIRABEGRON
     Indication: Hypertonic bladder
     Dosage: 50 MILLIGRAM, QD
     Route: 048
     Dates: start: 20170518, end: 20210812
  4. CELECOXIB [Suspect]
     Active Substance: CELECOXIB
     Indication: Product used for unknown indication
     Dosage: 100 MILLIGRAM, Q12H
     Route: 048
     Dates: end: 20210812
  5. REBAMIPIDE [Suspect]
     Active Substance: REBAMIPIDE
     Indication: Product used for unknown indication
     Dosage: 100 MILLIGRAM, Q12H
     Route: 048
     Dates: end: 20210812
  6. QUETIAPINE [Suspect]
     Active Substance: QUETIAPINE
     Indication: Depression
     Dosage: 25 MILLIGRAM, Q12H
     Route: 048
     Dates: end: 20210812
  7. QUETIAPINE [Suspect]
     Active Substance: QUETIAPINE
     Dosage: 100 MILLIGRAM, QD
     Route: 048
     Dates: end: 20210812
  8. QUAZEPAM [Suspect]
     Active Substance: QUAZEPAM
     Indication: Depression
     Dosage: 15 MILLIGRAM, QD
     Route: 048
     Dates: end: 20210812
  9. VALPROATE SODIUM [Suspect]
     Active Substance: VALPROATE SODIUM
     Indication: Depression
     Dosage: 600 MILLIGRAM, QD
     Route: 048
     Dates: end: 20210812
  10. SENNOSIDES [Suspect]
     Active Substance: SENNOSIDES
     Indication: Product used for unknown indication
     Dosage: 24 MILLIGRAM, QD
     Route: 048
     Dates: end: 20210812

REACTIONS (1)
  - Hepatitis fulminant [Fatal]

NARRATIVE: CASE EVENT DATE: 20210809
